FAERS Safety Report 23154973 (Version 1)
Quarter: 2023Q4

REPORT INFORMATION
  Report Type: Spontaneous
  Country: US (occurrence: US)
  Receive Date: 20231107
  Receipt Date: 20231107
  Transmission Date: 20240110
  Serious: No
  Sender: FDA-Public Use
  Company Number: US-ABBVIE-5483294

PATIENT
  Sex: Female

DRUGS (1)
  1. BYSTOLIC [Suspect]
     Active Substance: NEBIVOLOL HYDROCHLORIDE
     Indication: Hypertension
     Dosage: FORM STRENGTH : 2.5 MG
     Route: 048

REACTIONS (4)
  - Arthritis [Unknown]
  - Blood pressure increased [Unknown]
  - Immobile [Unknown]
  - Pain [Unknown]

NARRATIVE: CASE EVENT DATE: 20230101
